FAERS Safety Report 5811522-0 (Version None)
Quarter: 2008Q3

REPORT INFORMATION
  Report Type: 
  Country: None (occurrence: None)
  Receive Date: 20080716
  Receipt Date: 20080709
  Transmission Date: 20090109
  Serious: Yes (Disabling)
  Sender: FDA-Public Use
  Company Number: US-MERCK-0807USA01794

PATIENT
  Sex: Male

DRUGS (2)
  1. ZETIA [Suspect]
     Indication: TYPE IIA HYPERLIPIDAEMIA
     Route: 048
     Dates: end: 20080701
  2. LIPITOR [Concomitant]
     Route: 065

REACTIONS (1)
  - HYPOAESTHESIA [None]
